FAERS Safety Report 9016729 (Version 1)
Quarter: 2013Q1

REPORT INFORMATION
  Report Type: Spontaneous
  Country: AU (occurrence: AU)
  Receive Date: 20130116
  Receipt Date: 20130116
  Transmission Date: 20140127
  Serious: Yes (Other)
  Sender: FDA-Public Use
  Company Number: AU-ROCHE-1166683

PATIENT
  Age: 65 Year
  Sex: Male
  Weight: 124 kg

DRUGS (12)
  1. MIRCERA [Suspect]
     Indication: PRODUCT USED FOR UNKNOWN INDICATION
     Route: 042
     Dates: start: 20121129, end: 20121129
  2. ASPIRIN [Concomitant]
     Dosage: HALF IN MORNING
     Route: 065
  3. BISOPROLOL [Concomitant]
     Dosage: ONE AND HALF DAILY
     Route: 065
  4. CANDESARTAN CILEXETIL [Concomitant]
     Route: 065
  5. FRUSEMIDE [Concomitant]
     Route: 065
  6. ROSUVASTATIN [Concomitant]
     Route: 065
  7. DIAMICRON MR [Concomitant]
     Route: 065
  8. BETAMIN [Concomitant]
     Route: 065
  9. CALTRATE [Concomitant]
     Route: 065
  10. SEREPAX [Concomitant]
     Route: 065
  11. LANTUS [Concomitant]
     Dosage: 100 U/ML
     Route: 065
  12. IRON POLYMALTOSE [Concomitant]
     Dosage: 100MG/2ML
     Route: 065

REACTIONS (3)
  - Rash [Unknown]
  - Nausea [Recovered/Resolved with Sequelae]
  - Pruritus [Recovered/Resolved with Sequelae]
